FAERS Safety Report 21174265 (Version 6)
Quarter: 2022Q4

REPORT INFORMATION
  Report Type: Report from Study
  Country: US (occurrence: US)
  Receive Date: 20220804
  Receipt Date: 20221210
  Transmission Date: 20230113
  Serious: Yes (Hospitalization, Other)
  Sender: FDA-Public Use
  Company Number: US-NOVARTISTESTPH-NVSC2022US176636

PATIENT
  Age: 57 Year
  Sex: Female

DRUGS (3)
  1. MAYZENT [Suspect]
     Active Substance: SIPONIMOD
     Indication: Multiple sclerosis
     Dosage: UNK
     Route: 065
  2. MAYZENT [Suspect]
     Active Substance: SIPONIMOD
     Dosage: UNK UNK, QD
     Route: 048
     Dates: start: 202104, end: 202110
  3. OFATUMUMAB [Concomitant]
     Active Substance: OFATUMUMAB
     Indication: Multiple sclerosis
     Dosage: UNK
     Route: 065

REACTIONS (2)
  - Drug hypersensitivity [Recovered/Resolved]
  - Cardiomyopathy [Unknown]

NARRATIVE: CASE EVENT DATE: 20211001
